FAERS Safety Report 7225848-X (Version None)
Quarter: 2011Q1

REPORT INFORMATION
  Report Type: 
  Country: None (occurrence: None)
  Receive Date: 20110113
  Receipt Date: 20110111
  Transmission Date: 20110831
  Serious: Yes (Hospitalization)
  Sender: FDA-Public Use
  Company Number: IE-AMGEN-IRLSP2011001818

PATIENT

DRUGS (5)
  1. ALLOPURINOL [Concomitant]
  2. ARANESP [Suspect]
     Indication: RENAL FAILURE CHRONIC
     Dosage: 30 A?G, Q2WK
     Route: 058
     Dates: start: 20100929
  3. GALFER [Concomitant]
  4. LASIX [Concomitant]
  5. CRESTOR [Concomitant]

REACTIONS (1)
  - BLOOD DISORDER [None]
